FAERS Safety Report 19814956 (Version 2)
Quarter: 2022Q2

REPORT INFORMATION
  Report Type: Spontaneous
  Country: US (occurrence: US)
  Receive Date: 20210910
  Receipt Date: 20220427
  Transmission Date: 20220721
  Serious: No
  Sender: FDA-Public Use
  Company Number: US-PFIZER INC-2021438665

PATIENT
  Age: 69 Year
  Sex: Male

DRUGS (3)
  1. INLYTA [Suspect]
     Active Substance: AXITINIB
     Dosage: 6 MG, DAILY
  2. INLYTA [Suspect]
     Active Substance: AXITINIB
     Dosage: 5 MG
     Dates: start: 20210222
  3. INLYTA [Suspect]
     Active Substance: AXITINIB
     Dosage: 5 MG
     Dates: start: 20210305

REACTIONS (6)
  - Stomatitis [Not Recovered/Not Resolved]
  - Rash [Unknown]
  - Dry mouth [Unknown]
  - Decreased appetite [Unknown]
  - COVID-19 [Unknown]
  - Eating disorder [Unknown]

NARRATIVE: CASE EVENT DATE: 20220201
